FAERS Safety Report 4414850-9 (Version None)
Quarter: 2004Q3

REPORT INFORMATION
  Report Type: 
  Country: None (occurrence: None)
  Receive Date: 20040804
  Receipt Date: 20031205
  Transmission Date: 20050211
  Serious: No
  Sender: FDA-Public Use
  Company Number: US-BRISTOL-MYERS SQUIBB COMPANY-12451217

PATIENT
  Age: 87 Year
  Sex: Female
  Weight: 84 kg

DRUGS (12)
  1. GLUCOVANCE [Suspect]
     Indication: DIABETES MELLITUS NON-INSULIN-DEPENDENT
     Dosage: DOSAGE FORM= 2.5/500 MG
     Route: 048
     Dates: start: 20030101
  2. PLAVIX [Concomitant]
  3. SYNTHROID [Concomitant]
  4. PROPRANOLOL [Concomitant]
  5. ALLEGRA [Concomitant]
  6. OS-CAL + D [Concomitant]
  7. ZOCOR [Concomitant]
  8. ISOSORBIDE [Concomitant]
  9. UNIVASC [Concomitant]
  10. NITROGLYCERIN [Concomitant]
     Indication: CHEST PAIN
  11. MAALOX [Concomitant]
     Indication: DYSPEPSIA
  12. FOSAMAX [Concomitant]

REACTIONS (2)
  - MUSCULOSKELETAL STIFFNESS [None]
  - WEIGHT INCREASED [None]
